FAERS Safety Report 18430743 (Version 1)
Quarter: 2020Q4

REPORT INFORMATION
  Report Type: Spontaneous
  Country: US (occurrence: US)
  Receive Date: 20201027
  Receipt Date: 20201027
  Transmission Date: 20210114
  Serious: Yes (Hospitalization, Other)
  Sender: FDA-Public Use
  Company Number: US-SA-2020SA298983

PATIENT

DRUGS (1)
  1. DUPIXENT [Suspect]
     Active Substance: DUPILUMAB
     Indication: ASTHMA
     Dosage: 300 MG; FREQUENCY: EVERY OTHER
     Route: 058

REACTIONS (7)
  - Herpes zoster [Unknown]
  - Product use issue [Unknown]
  - Product dose omission issue [Unknown]
  - Pneumonia [Unknown]
  - Sepsis [Unknown]
  - Fear of disease [Unknown]
  - Malaise [Unknown]

NARRATIVE: CASE EVENT DATE: 2020
